FAERS Safety Report 8969471 (Version 1)
Quarter: 2012Q4

REPORT INFORMATION
  Report Type: Spontaneous
  Country: US (occurrence: None)
  Receive Date: 20121210
  Receipt Date: 20121210
  Transmission Date: 20130627
  Serious: Yes (Hospitalization)
  Sender: FDA-Public Use
  Company Number: 2012SP004281

PATIENT

DRUGS (4)
  1. FLUOROURACIL [Suspect]
     Indication: METASTATIC COLON CANCER
  2. IRINOTECAN HCL [Suspect]
  3. AFLIBERCEPT [Suspect]
  4. FOLINIC ACID [Suspect]

REACTIONS (1)
  - Colitis [None]
